FAERS Safety Report 7527336-X (Version None)
Quarter: 2011Q2

REPORT INFORMATION
  Report Type: 
  Country: None (occurrence: None)
  Receive Date: 20110607
  Receipt Date: 20110526
  Transmission Date: 20111010
  Serious: Yes (Other)
  Sender: FDA-Public Use
  Company Number: US-BAYER-201015091NA

PATIENT
  Age: 18 Year
  Sex: Female
  Weight: 55 kg

DRUGS (16)
  1. SERTRALINE HYDROCHLORIDE [Concomitant]
  2. LEVONORGESTREL + ETHINYL ESTRADIOL [Concomitant]
     Indication: PRODUCT USED FOR UNKNOWN INDICATION
     Dates: start: 20061201, end: 20070401
  3. IMITREX [Concomitant]
     Dates: start: 20050101, end: 20050101
  4. ADVIL LIQUI-GELS [Concomitant]
     Dates: start: 20030101
  5. KLONOPIN [Concomitant]
     Indication: OBSESSIVE-COMPULSIVE DISORDER
     Dosage: 1.0 MG (DAILY DOSE), BID,
     Dates: start: 20090601, end: 20091201
  6. PROPOXYPHENE NAPSYLATE W/ ACETAMINOPHEN [Concomitant]
  7. YAZ [Suspect]
     Indication: PRODUCT USED FOR UNKNOWN INDICATION
  8. LEXAPRO [Concomitant]
     Indication: OBSESSIVE-COMPULSIVE DISORDER
     Dates: start: 20060101, end: 20060101
  9. PHENAZOPYRIDINE HCL TAB [Concomitant]
  10. ZOLOFT [Concomitant]
     Dosage: ZOLOFT 25 MG EVERY DAY
  11. YAZ [Suspect]
     Indication: CONTRACEPTION
     Route: 048
     Dates: start: 20050101, end: 20080101
  12. BUSPAR [Concomitant]
     Indication: OBSESSIVE-COMPULSIVE DISORDER
     Dates: start: 20070101, end: 20070101
  13. SULFAMETHOXAZOLE [Concomitant]
  14. YASMIN [Suspect]
     Indication: PRODUCT USED FOR UNKNOWN INDICATION
     Dates: start: 20060901, end: 20061214
  15. ANTIBIOTICS [Concomitant]
     Indication: URINARY TRACT INFECTION
     Dates: start: 20080201
  16. WELLBUTRIN [Concomitant]
     Indication: OBSESSIVE-COMPULSIVE DISORDER
     Dates: start: 20091201

REACTIONS (7)
  - ABDOMINAL PAIN UPPER [None]
  - ABDOMINAL DISCOMFORT [None]
  - NAUSEA [None]
  - GALLBLADDER INJURY [None]
  - BILIARY DYSKINESIA [None]
  - BACK PAIN [None]
  - VOMITING [None]
